FAERS Safety Report 15983910 (Version 1)
Quarter: 2019Q1

REPORT INFORMATION
  Report Type: Spontaneous
  Country: US (occurrence: US)
  Receive Date: 20190220
  Receipt Date: 20190220
  Transmission Date: 20190418
  Serious: No
  Sender: FDA-Public Use
  Company Number: US-009507513-1902USA007621

PATIENT
  Age: 13 Year
  Sex: Male

DRUGS (1)
  1. TRUSOPT [Suspect]
     Active Substance: DORZOLAMIDE HYDROCHLORIDE
     Indication: RETINOSCHISIS
     Dosage: 3 TIMES PER DAY IN BOTH EYES (TOPICAL)

REACTIONS (1)
  - Product use in unapproved indication [Unknown]
